FAERS Safety Report 25743244 (Version 1)
Quarter: 2025Q3

REPORT INFORMATION
  Report Type: Spontaneous
  Country: US (occurrence: US)
  Receive Date: 20250830
  Receipt Date: 20250830
  Transmission Date: 20251021
  Serious: Yes (Other)
  Sender: AMGEN
  Company Number: US-AMGEN-USASP2025167386

PATIENT
  Age: 10 Year
  Sex: Male

DRUGS (10)
  1. PREDNISONE [Suspect]
     Active Substance: PREDNISONE
     Indication: Paediatric acute-onset neuropsychiatric syndrome
     Dosage: 20 MILLIGRAM, BID (APPROX. 2  MG/KG/DAY X 5 DAYS)
     Route: 065
  2. PREDNISONE [Suspect]
     Active Substance: PREDNISONE
     Dosage: 20 MILLIGRAM, BID (APPROX. 2  MG/KG/DAY X 5 DAYS)
     Route: 065
  3. PREDNISONE [Suspect]
     Active Substance: PREDNISONE
     Dosage: 20 MILLIGRAM, BID (APPROX. 2  MG/KG/DAY X 5 DAYS)
     Route: 065
  4. AMOXICILLIN [Concomitant]
     Active Substance: AMOXICILLIN
     Indication: Prophylaxis
     Route: 065
  5. ZOLOFT [Concomitant]
     Active Substance: SERTRALINE HYDROCHLORIDE
     Route: 065
  6. ZOLOFT [Concomitant]
     Active Substance: SERTRALINE HYDROCHLORIDE
     Route: 065
  7. ZOLOFT [Concomitant]
     Active Substance: SERTRALINE HYDROCHLORIDE
     Route: 065
  8. MOTRIN [Concomitant]
     Active Substance: IBUPROFEN
     Dosage: THREE TIMES A DAY
     Route: 065
  9. MELATONIN [Concomitant]
     Active Substance: MELATONIN
  10. BENADRYL [Concomitant]
     Active Substance: DIPHENHYDRAMINE HYDROCHLORIDE

REACTIONS (8)
  - Paediatric acute-onset neuropsychiatric syndrome [Unknown]
  - Drug effective for unapproved indication [Unknown]
  - Attention deficit hyperactivity disorder [Recovering/Resolving]
  - Emotional distress [Recovering/Resolving]
  - Intrusive thoughts [Recovering/Resolving]
  - Psychomotor hyperactivity [Recovering/Resolving]
  - Malaise [Recovering/Resolving]
  - Off label use [Unknown]
